FAERS Safety Report 14008880 (Version 1)
Quarter: 2017Q3

REPORT INFORMATION
  Report Type: Spontaneous
  Country: US (occurrence: US)
  Receive Date: 20170925
  Receipt Date: 20170925
  Transmission Date: 20171128
  Serious: Yes (Death, Life-Threatening, Hospitalization)
  Sender: FDA-Public Use
  Company Number: US-SA-2017SA177784

PATIENT
  Age: 47 Year
  Sex: Male
  Weight: 96.9 kg

DRUGS (4)
  1. MIRCERA [Concomitant]
     Active Substance: METHOXY POLYETHYLENE GLYCOL-EPOETIN BETA
     Route: 065
  2. HECTOROL [Suspect]
     Active Substance: DOXERCALCIFEROL
     Indication: HYPERPARATHYROIDISM
     Route: 042
     Dates: start: 20170809, end: 20170906
  3. VENOFER [Suspect]
     Active Substance: IRON SUCROSE
     Indication: IRON DEFICIENCY
     Dosage: FREQUENCY: EVERY TREATMENT
     Route: 042
     Dates: start: 20170809, end: 20170906
  4. HEPARIN [Concomitant]
     Active Substance: HEPARIN SODIUM
     Dosage: DOSE:2000 UNIT(S)
     Route: 065

REACTIONS (6)
  - Hyperhidrosis [Fatal]
  - Dyspnoea [Fatal]
  - Unresponsive to stimuli [Fatal]
  - Pain in extremity [Unknown]
  - Pallor [Fatal]
  - Peripheral swelling [Unknown]

NARRATIVE: CASE EVENT DATE: 20170830
